FAERS Safety Report 5144314-9 (Version None)
Quarter: 2006Q4

REPORT INFORMATION
  Report Type: 
  Country: None (occurrence: None)
  Receive Date: 20061030
  Receipt Date: 20061023
  Transmission Date: 20070319
  Serious: Yes (Other)
  Sender: FDA-Public Use
  Company Number: SPV1-2006-01289

PATIENT
  Age: 8 Year
  Sex: Male

DRUGS (3)
  1. DAYTRANA [Suspect]
     Dosage: 20 MG DAILY, TRANSDERMAL
     Route: 062
  2. RISPERIDONE [Concomitant]
  3. CLONIDINE [Concomitant]

REACTIONS (7)
  - APPLICATION SITE RASH [None]
  - FLUSHING [None]
  - HYPERHIDROSIS [None]
  - LIP SWELLING [None]
  - PSYCHOMOTOR HYPERACTIVITY [None]
  - TACHYCARDIA [None]
  - TARDIVE DYSKINESIA [None]
